FAERS Safety Report 20160633 (Version 14)
Quarter: 2023Q1

REPORT INFORMATION
  Report Type: Report from Study
  Country: CN (occurrence: None)
  Receive Date: 20211208
  Receipt Date: 20230106
  Transmission Date: 20230417
  Serious: Yes (Hospitalization)
  Sender: FDA-Public Use
  Company Number: CN-Eisai Medical Research-EC-2021-104519

PATIENT
  Age: 48 Year
  Sex: Male
  Weight: 95 kg

DRUGS (14)
  1. LENVATINIB [Suspect]
     Active Substance: LENVATINIB
     Indication: Hepatocellular carcinoma
     Route: 048
     Dates: start: 20210618, end: 20210927
  2. LENVATINIB [Suspect]
     Active Substance: LENVATINIB
     Dosage: STARTING DOSE 12 MG, FLUCTUATED DOSAGE
     Route: 048
     Dates: start: 20210928
  3. PEMBROLIZUMAB [Suspect]
     Active Substance: PEMBROLIZUMAB
     Indication: Hepatocellular carcinoma
     Route: 042
     Dates: start: 20210618, end: 20210908
  4. PEMBROLIZUMAB [Suspect]
     Active Substance: PEMBROLIZUMAB
     Route: 042
     Dates: start: 20211020
  5. EPIRUBICIN [Suspect]
     Active Substance: EPIRUBICIN
     Indication: Hepatocellular carcinoma
     Dosage: FREQUENCY UNKNOWN
     Dates: start: 20210705, end: 20210823
  6. EPIRUBICIN [Suspect]
     Active Substance: EPIRUBICIN
     Dosage: STARTING DOSE 30 MG, FLUCTUATED DOSAGE, FREQUENCY UNKNOWN
     Dates: start: 20211227
  7. MAGNESIUM ISOGLYCYRRHIZINATE [Concomitant]
     Active Substance: MAGNESIUM ISOGLYCYRRHIZINATE
     Route: 042
     Dates: start: 20210823, end: 20210826
  8. ENTECAVIR [Concomitant]
     Active Substance: ENTECAVIR
     Dates: start: 202102
  9. GLUTATHIONE [Concomitant]
     Active Substance: GLUTATHIONE
     Route: 042
     Dates: start: 20210823, end: 20210826
  10. ELECTROLYTES NOS [Concomitant]
     Active Substance: ELECTROLYTES NOS
     Route: 042
     Dates: start: 20210823, end: 20210825
  11. FAMOTIDINE [Concomitant]
     Active Substance: FAMOTIDINE
     Route: 042
     Dates: start: 20210823, end: 20210826
  12. TORSEMIDE [Concomitant]
     Active Substance: TORSEMIDE
     Route: 042
     Dates: start: 20210823, end: 20210825
  13. BICYCLOL [Concomitant]
     Active Substance: BICYCLOL
     Dates: start: 20210825, end: 20210910
  14. OMEGA-3-ACID ETHYL ESTERS [Concomitant]
     Active Substance: OMEGA-3-ACID ETHYL ESTERS
     Route: 042
     Dates: start: 20210823, end: 20210825

REACTIONS (1)
  - Platelet count decreased [Recovered/Resolved]

NARRATIVE: CASE EVENT DATE: 20210908
